FAERS Safety Report 24451557 (Version 1)
Quarter: 2024Q4

REPORT INFORMATION
  Report Type: Spontaneous
  Country: US (occurrence: US)
  Receive Date: 20241017
  Receipt Date: 20241017
  Transmission Date: 20250114
  Serious: No
  Sender: PFIZER
  Company Number: US-PFIZER INC-202400276515

PATIENT
  Age: 77 Year
  Sex: Female
  Weight: 89.7 kg

DRUGS (1)
  1. DOFETILIDE [Suspect]
     Active Substance: DOFETILIDE

REACTIONS (2)
  - Migraine [Unknown]
  - Feeling abnormal [Unknown]
